FAERS Safety Report 7325825-4 (Version None)
Quarter: 2011Q1

REPORT INFORMATION
  Report Type: 
  Country: None (occurrence: None)
  Receive Date: 20110302
  Receipt Date: 20110224
  Transmission Date: 20110831
  Serious: Yes (Death, Other)
  Sender: FDA-Public Use
  Company Number: MX-GENZYME-FLUD-1000749

PATIENT

DRUGS (15)
  1. NITAZOXANIDE [Concomitant]
     Indication: INFECTION PROPHYLAXIS
     Dosage: ON DAYS -4 TO -2
     Route: 065
  2. METHOTREXATE [Concomitant]
     Indication: PROPHYLAXIS AGAINST GRAFT VERSUS HOST DISEASE
     Dosage: 5 MG/M2, QD ON DAYS 1, 3, AND 6
     Route: 065
  3. FLUDARA [Suspect]
     Indication: STEM CELL TRANSPLANT
  4. BUSULFAN [Suspect]
     Indication: BONE MARROW CONDITIONING REGIMEN
     Dosage: 4 MG/KG, QD ON DAYS -6 AND -5
     Route: 048
  5. CYCLOPHOSPHAMIDE [Suspect]
     Indication: BONE MARROW CONDITIONING REGIMEN
     Dosage: 350 MG/M2, QD ON DAYS -4 TO -2
     Route: 065
  6. TRIMETHOPRIM + SULFAMETHOXAZOLE [Concomitant]
     Indication: INFECTION PROPHYLAXIS
     Dosage: ON DAYS -7 TO -2
     Route: 065
  7. TRIMETHOPRIM + SULFAMETHOXAZOLE [Concomitant]
     Dosage: PROPHYLACTIC DOSES UNTIL DAY 180
     Route: 065
  8. CIPROFLOXACIN [Concomitant]
     Indication: INFECTION PROPHYLAXIS
     Dosage: FROM DAY -1 UNTIL MYELOID ENGRAFTMENT
     Route: 065
  9. ITRACONAZOLE [Concomitant]
     Indication: INFECTION PROPHYLAXIS
     Dosage: FROM DAY -1 UNTIL MYELOID ENGRAFTMENT
     Route: 065
  10. CYCLOPHOSPHAMIDE [Suspect]
     Indication: STEM CELL TRANSPLANT
  11. ACYCLOVIR [Concomitant]
     Indication: INFECTION PROPHYLAXIS
     Dosage: FROM DAY -1 UNTIL MYELOID ENGRAFTMENT
     Route: 065
  12. BUSULFAN [Suspect]
     Indication: STEM CELL TRANSPLANT
  13. ACYCLOVIR [Concomitant]
     Dosage: PROPHYLACTIC DOSES UNTIL DAY 180
     Route: 065
  14. FLUDARA [Suspect]
     Indication: BONE MARROW CONDITIONING REGIMEN
     Dosage: 30 MG/M2, QD ON DAYS -4 TO -2
     Route: 065
  15. CICLOSPORIN [Concomitant]
     Indication: PROPHYLAXIS AGAINST GRAFT VERSUS HOST DISEASE
     Dosage: 5 MG/KG, UNK, DIVIDED IN 2 DOSES FROM DAY -1
     Route: 048

REACTIONS (5)
  - NEOPLASM MALIGNANT [None]
  - VASCULITIS [None]
  - CHRONIC GRAFT VERSUS HOST DISEASE [None]
  - ACUTE GRAFT VERSUS HOST DISEASE [None]
  - AUTOIMMUNE THROMBOCYTOPENIA [None]
